FAERS Safety Report 22293750 (Version 1)
Quarter: 2023Q2

REPORT INFORMATION
  Report Type: Spontaneous
  Country: PL (occurrence: PL)
  Receive Date: 20230508
  Receipt Date: 20230508
  Transmission Date: 20230721
  Serious: Yes (Hospitalization)
  Sender: FDA-Public Use
  Company Number: PL-Accord-356529

PATIENT
  Age: 10 Month
  Sex: Male

DRUGS (1)
  1. CYANOCOBALAMIN [Suspect]
     Active Substance: CYANOCOBALAMIN
     Indication: Vitamin B12 deficiency
     Dosage: 2 DOSES ON 2 CONSECUTIVE DAYS
     Route: 030

REACTIONS (5)
  - Hypertransaminasaemia [Recovered/Resolved]
  - Tremor [Recovered/Resolved]
  - Vitamin B12 increased [Recovered/Resolved]
  - Blood lactate dehydrogenase increased [Recovered/Resolved]
  - Head titubation [Recovered/Resolved]
